FAERS Safety Report 14975102 (Version 2)
Quarter: 2018Q3

REPORT INFORMATION
  Report Type: Spontaneous
  Country: FR (occurrence: FR)
  Receive Date: 20180605
  Receipt Date: 20180829
  Transmission Date: 20181010
  Serious: Yes (Life-Threatening)
  Sender: FDA-Public Use
  Company Number: PHHY2018FR014103

PATIENT
  Age: 78 Year
  Sex: Female

DRUGS (1)
  1. ACLASTA [Suspect]
     Active Substance: ZOLEDRONIC ACID
     Indication: OSTEOPOROTIC FRACTURE
     Dosage: 5 MG, Q12MO
     Route: 042
     Dates: start: 20180227, end: 20180227

REACTIONS (7)
  - Thrombocytopenia [Recovered/Resolved]
  - Hyperthermia [Recovered/Resolved]
  - Pain in extremity [Recovered/Resolved]
  - Shock [Recovered/Resolved]
  - Musculoskeletal pain [Recovered/Resolved]
  - Hypotension [Recovered/Resolved]
  - Asthenia [Recovered/Resolved]

NARRATIVE: CASE EVENT DATE: 20180227
